FAERS Safety Report 8322764-7 (Version None)
Quarter: 2012Q2

REPORT INFORMATION
  Report Type: 
  Country: None (occurrence: None)
  Receive Date: 20120430
  Receipt Date: 20090917
  Transmission Date: 20120825
  Serious: Yes (Other)
  Sender: FDA-Public Use
  Company Number: US-TEVA-2009010455

PATIENT
  Sex: Female
  Weight: 90.8 kg

DRUGS (10)
  1. PROVIGIL [Suspect]
     Indication: NARCOLEPSY
     Dosage: 200 MILLIGRAM;
     Route: 048
     Dates: start: 20090601
  2. ABILIFY [Concomitant]
  3. ALLEGRA [Concomitant]
  4. ARTHROTEC [Concomitant]
  5. PRILOSEC [Concomitant]
  6. ZANAFLEX [Concomitant]
  7. LUNESTA [Concomitant]
  8. PARNATE [Concomitant]
  9. MIRAPEX [Concomitant]
  10. LEVOTHROID [Concomitant]

REACTIONS (1)
  - SUICIDAL IDEATION [None]
